FAERS Safety Report 6104737-8 (Version None)
Quarter: 2009Q1

REPORT INFORMATION
  Report Type: 
  Country: None (occurrence: None)
  Receive Date: 20090302
  Receipt Date: 20090218
  Transmission Date: 20090719
  Serious: Yes (Hospitalization, Other)
  Sender: FDA-Public Use
  Company Number: 231921K09USA

PATIENT
  Age: 45 Year
  Sex: Female
  Weight: 66 kg

DRUGS (3)
  1. REBIF [Suspect]
     Indication: MULTIPLE SCLEROSIS
     Dosage: 45 MCG; 22 MCG. 3 IN 1 WEEKS, SUBCUTANEOUS
     Route: 058
     Dates: start: 20060322, end: 20081001
  2. PROTONIX [Concomitant]
  3. XANAX [Concomitant]

REACTIONS (15)
  - AXILLARY PAIN [None]
  - CARDIAC FLUTTER [None]
  - CHEST DISCOMFORT [None]
  - CHEST PAIN [None]
  - CHOLELITHIASIS [None]
  - DIZZINESS [None]
  - ELECTROCARDIOGRAM ABNORMAL [None]
  - FACIAL PAIN [None]
  - GALLBLADDER NON-FUNCTIONING [None]
  - GASTROOESOPHAGEAL REFLUX DISEASE [None]
  - HYPERHIDROSIS [None]
  - NAUSEA [None]
  - PAIN IN JAW [None]
  - PALPITATIONS [None]
  - WEIGHT DECREASED [None]
